FAERS Safety Report 9086803 (Version 2)
Quarter: 2013Q2

REPORT INFORMATION
  Report Type: Report from Study
  Country: US (occurrence: US)
  Receive Date: 20130217
  Receipt Date: 20130422
  Transmission Date: 20140414
  Serious: Yes (Hospitalization)
  Sender: FDA-Public Use
  Company Number: US-JNJFOC-20130206360

PATIENT
  Age: 65 Year
  Sex: Female
  Weight: 76.2 kg

DRUGS (1)
  1. SIMPONI [Suspect]
     Indication: RHEUMATOID ARTHRITIS
     Dosage: STARTED TREATMENT ON AN UNSPECIFIED DATE IN 2010 OR 2011
     Route: 058

REACTIONS (8)
  - Asthma [Unknown]
  - Anaemia [Unknown]
  - Immune system disorder [Unknown]
  - Blood pressure increased [Unknown]
  - Malaise [Unknown]
  - Pain [Unknown]
  - Erythema [Unknown]
  - Drug ineffective [Unknown]
